FAERS Safety Report 7911359-2 (Version None)
Quarter: 2011Q4

REPORT INFORMATION
  Report Type: 
  Country: None (occurrence: None)
  Receive Date: 20111109
  Receipt Date: 20111104
  Transmission Date: 20120403
  Serious: Yes (Other)
  Sender: FDA-Public Use
  Company Number: AE-1111-335

PATIENT
  Age: 48 Year
  Sex: Female

DRUGS (3)
  1. CHEMOTHERAPY [Concomitant]
  2. LIDOCAINE [Suspect]
     Indication: BONE PAIN
     Dosage: 1 PATCH A DAY
     Route: 061
  3. SYNTHROID [Concomitant]

REACTIONS (3)
  - DRUG INEFFECTIVE FOR UNAPPROVED INDICATION [None]
  - BREAST CANCER [None]
  - PRODUCT ADHESION ISSUE [None]
